FAERS Safety Report 17445887 (Version 4)
Quarter: 2020Q2

REPORT INFORMATION
  Report Type: Report from Study
  Country: US (occurrence: US)
  Receive Date: 20200221
  Receipt Date: 20200425
  Transmission Date: 20200713
  Serious: No
  Sender: FDA-Public Use
  Company Number: NVSC2020US048704

PATIENT
  Sex: Male

DRUGS (1)
  1. COSENTYX [Suspect]
     Active Substance: SECUKINUMAB
     Indication: PSORIASIS
     Dosage: 300 MG
     Route: 058
     Dates: start: 20190524

REACTIONS (5)
  - Therapeutic product effect incomplete [Unknown]
  - Oral disorder [Unknown]
  - Dust allergy [Unknown]
  - Skin fissures [Unknown]
  - Dry skin [Unknown]
